FAERS Safety Report 16997178 (Version 1)
Quarter: 2019Q4

REPORT INFORMATION
  Report Type: Spontaneous
  Country: US (occurrence: US)
  Receive Date: 20190924
  Receipt Date: 20190924
  Transmission Date: 20200122
  Serious: Yes (Hospitalization)
  Sender: FDA-Public Use
  Company Number: None

PATIENT
  Age: 76 Year
  Sex: Female

DRUGS (16)
  1. PANTOPRAZOLE [Concomitant]
     Active Substance: PANTOPRAZOLE
  2. PRAMIPEXOLE. [Concomitant]
     Active Substance: PRAMIPEXOLE
  3. PRAVASTATIN. [Concomitant]
     Active Substance: PRAVASTATIN
  4. DOXYCLYCL HCY [Concomitant]
  5. TORSEMIDE. [Concomitant]
     Active Substance: TORSEMIDE
  6. TRAZODONE [Concomitant]
     Active Substance: TRAZODONE HYDROCHLORIDE
  7. SOLIFENACIN [Concomitant]
     Active Substance: SOLIFENACIN
  8. VESICARE [Concomitant]
     Active Substance: SOLIFENACIN SUCCINATE
  9. ADCIRCA [Suspect]
     Active Substance: TADALAFIL
     Indication: PULMONARY ARTERIAL HYPERTENSION
     Route: 048
     Dates: start: 20160119
  10. MYCOPHENOLATE [Concomitant]
     Active Substance: MYCOPHENOLIC ACID
  11. ELIQUIS [Concomitant]
     Active Substance: APIXABAN
  12. FEROSUL [Concomitant]
  13. METRONIDAZOL [Concomitant]
     Active Substance: METRONIDAZOLE
  14. PREDNISONE. [Concomitant]
     Active Substance: PREDNISONE
  15. METOPROL SUCCINATE [Concomitant]
     Active Substance: METOPROLOL SUCCINATE
  16. BIOTIN [Concomitant]
     Active Substance: BIOTIN

REACTIONS (2)
  - Device related infection [None]
  - Pneumonia [None]

NARRATIVE: CASE EVENT DATE: 20190730
